FAERS Safety Report 4410580-8 (Version None)
Quarter: 2004Q3

REPORT INFORMATION
  Report Type: 
  Country: None (occurrence: None)
  Receive Date: 20040726
  Receipt Date: 20040713
  Transmission Date: 20050211
  Serious: Yes (Hospitalization)
  Sender: FDA-Public Use
  Company Number: 2004049632

PATIENT
  Age: 21 Year
  Sex: Female

DRUGS (1)
  1. VIAGRA [Suspect]
     Indication: PULMONARY HYPERTENSION
     Dosage: 150 MG (50 MG, 1 IN 1 D) ORAL
     Route: 048

REACTIONS (2)
  - CARDIAC FAILURE [None]
  - PULMONARY HYPERTENSION [None]
